FAERS Safety Report 18645541 (Version 1)
Quarter: 2020Q4

REPORT INFORMATION
  Report Type: Spontaneous
  Country: US (occurrence: US)
  Receive Date: 20201221
  Receipt Date: 20201221
  Transmission Date: 20210114
  Serious: No
  Sender: FDA-Public Use
  Company Number: US-PFIZER INC-2020502555

PATIENT
  Age: 55 Year
  Sex: Female

DRUGS (2)
  1. LEVETIRACETAM. [Suspect]
     Active Substance: LEVETIRACETAM
     Dosage: UNK
  2. IBRANCE [Concomitant]
     Active Substance: PALBOCICLIB

REACTIONS (3)
  - Drug hypersensitivity [Recovering/Resolving]
  - Migraine with aura [Recovering/Resolving]
  - Impaired driving ability [Recovering/Resolving]
